FAERS Safety Report 11177993 (Version 1)
Quarter: 2015Q2

REPORT INFORMATION
  Report Type: Spontaneous
  Country: US (occurrence: None)
  Receive Date: 20150515
  Receipt Date: 20150515
  Transmission Date: 20150821
  Serious: Yes (Other)
  Sender: FDA-Public Use
  Company Number: 2015002181

PATIENT
  Sex: Female
  Weight: 83.5 kg

DRUGS (6)
  1. PERCOCET (OXYCODONE HYDROCHLORIDE, PARACETAMOL) [Concomitant]
  2. ROBAXIN (METHOCARBAMOL) [Concomitant]
  3. FENTANYL. [Concomitant]
     Active Substance: FENTANYL
  4. CIMZIA [Suspect]
     Active Substance: CERTOLIZUMAB PEGOL
     Indication: RHEUMATOID ARTHRITIS
     Dosage: EITHER 200 MG Q 2 WEEKS OR SHE TAKES 200 MG 3 TO 4 WEEKS DEPENDING ON HER SYMPTOMS
     Dates: start: 2012
  5. PREDNISONE (PREDNISONE ACETATE) [Concomitant]
  6. FLEXERIL [Concomitant]
     Active Substance: CYCLOBENZAPRINE HYDROCHLORIDE

REACTIONS (4)
  - Immune system disorder [None]
  - Drug ineffective [None]
  - Respiratory tract infection fungal [None]
  - Inappropriate schedule of drug administration [None]

NARRATIVE: CASE EVENT DATE: 2012
